FAERS Safety Report 8188439-2 (Version None)
Quarter: 2012Q1

REPORT INFORMATION
  Report Type: 
  Country: None (occurrence: None)
  Receive Date: 20120306
  Receipt Date: 20120228
  Transmission Date: 20120608
  Serious: Yes (Death, Life-Threatening, Hospitalization, Other)
  Sender: FDA-Public Use
  Company Number: PHHO2008FR07888

PATIENT
  Sex: Male
  Weight: 60 kg

DRUGS (5)
  1. DEXAMETHASONE [Concomitant]
     Dosage: UNK
  2. VINCRISTINE [Concomitant]
  3. CYCLOPHOSPHAMIDE [Concomitant]
  4. DOXORUBICIN HCL [Concomitant]
  5. IMATINIB MESYLATE [Suspect]
     Indication: ACUTE LYMPHOCYTIC LEUKAEMIA
     Dosage: 800 MG, QD
     Route: 048
     Dates: start: 20080417, end: 20080506

REACTIONS (16)
  - PROGRESSIVE MULTIFOCAL LEUKOENCEPHALOPATHY [None]
  - NAUSEA [None]
  - HYPOTONIA [None]
  - CENTRAL NERVOUS SYSTEM LESION [None]
  - PYREXIA [None]
  - ATRIAL FIBRILLATION [None]
  - ARRHYTHMIA [None]
  - PNEUMONIA ASPIRATION [None]
  - BLOOD BILIRUBIN INCREASED [None]
  - APLASIA [None]
  - INTRACRANIAL VENOUS SINUS THROMBOSIS [None]
  - RESPIRATORY DISTRESS [None]
  - CITROBACTER INFECTION [None]
  - PSYCHOMOTOR RETARDATION [None]
  - COUGH [None]
  - VOMITING [None]
